FAERS Safety Report 4933439-6 (Version None)
Quarter: 2006Q1

REPORT INFORMATION
  Report Type: 
  Country: None (occurrence: None)
  Receive Date: 20060306
  Receipt Date: 20060227
  Transmission Date: 20060701
  Serious: Yes (Other)
  Sender: FDA-Public Use
  Company Number: FR-GLAXOSMITHKLINE-B0413576A

PATIENT
  Age: 53 Year
  Sex: Female
  Weight: 54 kg

DRUGS (2)
  1. MALARONE [Suspect]
     Indication: MALARIA PROPHYLAXIS
     Dosage: 1TAB PER DAY
     Route: 048
     Dates: start: 20060207, end: 20060222
  2. LEVOTHYROX [Concomitant]
     Indication: THYROIDITIS
     Route: 048
     Dates: start: 20040101

REACTIONS (3)
  - BLOOD PRESSURE DECREASED [None]
  - DIPLOPIA [None]
  - MALAISE [None]
